FAERS Safety Report 12635814 (Version 1)
Quarter: 2016Q3

REPORT INFORMATION
  Report Type: Report from Study
  Country: US (occurrence: US)
  Receive Date: 20160809
  Receipt Date: 20160809
  Transmission Date: 20161109
  Serious: Yes (Life-Threatening, Hospitalization)
  Sender: FDA-Public Use
  Company Number: US-ROCHE-1024483

PATIENT
  Age: 64 Year
  Sex: Male
  Weight: 89.5 kg

DRUGS (7)
  1. VISMODEGIB [Suspect]
     Active Substance: VISMODEGIB
     Route: 048
     Dates: start: 20110427
  2. VISMODEGIB [Suspect]
     Active Substance: VISMODEGIB
     Route: 048
     Dates: start: 20110608
  3. VISMODEGIB [Suspect]
     Active Substance: VISMODEGIB
     Route: 048
     Dates: start: 20111012, end: 20111021
  4. CISPLATIN. [Suspect]
     Active Substance: CISPLATIN
     Indication: SMALL CELL LUNG CANCER
     Dosage: OVER 2 HRS ON DAY 1, LAST DOSE PRIOR TO SAE ON 08 JUNE 2011, FORM: NOT REPORTED
     Route: 042
     Dates: start: 20110406, end: 20111021
  5. VISMODEGIB [Suspect]
     Active Substance: VISMODEGIB
     Indication: SMALL CELL LUNG CANCER
     Dosage: 21 DAYS CYCLE, LAST DOSE PRIOR TO SAE ON 11 JULY 2011, FORM: NOT REPORTED?3150MG (COURSE 1)
     Route: 048
     Dates: start: 20110406
  6. VISMODEGIB [Suspect]
     Active Substance: VISMODEGIB
     Route: 048
     Dates: start: 20110629
  7. ETOPOSIDE. [Suspect]
     Active Substance: ETOPOSIDE
     Indication: SMALL CELL LUNG CANCER
     Dosage: OVER 2 HRS ON DAYS 1-3 OF 21 DAYS CYCLE, LAST DOSE PRIOR TO SAE ON 10 JUNE 2010, FORM: NOT REPORTED
     Route: 042
     Dates: start: 20110406, end: 20111021

REACTIONS (1)
  - Suicide attempt [Unknown]

NARRATIVE: CASE EVENT DATE: 20110711
